FAERS Safety Report 8796287 (Version 3)
Quarter: 2012Q4

REPORT INFORMATION
  Report Type: 
  Country: BE (occurrence: BE)
  Receive Date: 20120920
  Receipt Date: 20121218
  Transmission Date: 20130627
  Serious: Yes (Other)
  Sender: FDA-Public Use
  Company Number: BE-AMGEN-BELSP2012058401

PATIENT
  Age: 80 Year
  Sex: Female
  Weight: 77.5 kg

DRUGS (12)
  1. ARANESP [Suspect]
     Indication: ANAEMIA
     Dosage: 60 mug, q3wk
     Route: 058
     Dates: start: 20120412, end: 20120803
  2. ARANESP [Suspect]
  3. MICARDIS PLUS [Concomitant]
     Indication: HYPERTENSION
     Dosage: 1 DF, qd
     Route: 048
     Dates: start: 2008
  4. AMLODIPINE [Concomitant]
     Dosage: 5 mg, bid
     Route: 048
     Dates: start: 2008
  5. ZOCOR [Concomitant]
     Indication: HYPERCHOLESTEROLAEMIA
     Dosage: 20 mg, qd
     Route: 048
     Dates: start: 2008
  6. TRAZOLAN [Concomitant]
     Indication: INSOMNIA
     Dosage: 100 mg, qd
     Route: 048
     Dates: start: 2008
  7. CALCIUM CARBONATE [Concomitant]
     Indication: HYPERPHOSPHATAEMIA
     Dosage: 1 g, bid
     Route: 048
     Dates: start: 201107
  8. SODIUM BICARBONATE [Concomitant]
     Indication: METABOLIC ACIDOSIS
     Dosage: 1 g, bid
     Route: 048
     Dates: start: 201111
  9. D-CURE [Concomitant]
     Indication: VITAMIN D DEFICIENCY
     Dosage: UNK UNK, q2wk
     Route: 048
     Dates: start: 201103
  10. LASIX                              /00032601/ [Concomitant]
  11. NUTROF TOTAL [Concomitant]
  12. VENOFER [Concomitant]
     Dosage: 200 mg, q3mo
     Route: 042
     Dates: start: 20120412, end: 20120803

REACTIONS (9)
  - Dermatitis allergic [Not Recovered/Not Resolved]
  - Eosinophilia [Unknown]
  - Insomnia [Unknown]
  - Dehydration [Unknown]
  - Hyponatraemia [Unknown]
  - Hypochloraemia [Unknown]
  - Hypocalcaemia [Recovered/Resolved]
  - Blood parathyroid hormone decreased [Recovered/Resolved]
  - Metabolic acidosis [Unknown]
